FAERS Safety Report 6464763-6 (Version None)
Quarter: 2009Q4

REPORT INFORMATION
  Report Type: 
  Country: None (occurrence: None)
  Receive Date: 20091201
  Receipt Date: 20091119
  Transmission Date: 20100525
  Serious: Yes (Hospitalization)
  Sender: FDA-Public Use
  Company Number: PHHY2009CH50696

PATIENT
  Age: 94 Year
  Sex: Female

DRUGS (4)
  1. DIOVAN HCT [Suspect]
     Dosage: 1 DF PER DAY
     Dates: end: 20091011
  2. POTASSIUM CHLORIDE [Suspect]
     Dosage: 1 DF PER DAY
     Dates: end: 20091011
  3. COMILORID [Suspect]
     Dosage: 1 DF PER DAY
     Dates: end: 20091011
  4. TORSEMIDE [Concomitant]
     Dosage: 10 MG PER DAY

REACTIONS (3)
  - HYPERKALAEMIA [None]
  - LOWER RESPIRATORY TRACT INFECTION [None]
  - URINARY RETENTION [None]
